FAERS Safety Report 6314134-8 (Version None)
Quarter: 2009Q3

REPORT INFORMATION
  Report Type: 
  Country: None (occurrence: None)
  Receive Date: 20090817
  Receipt Date: 20090804
  Transmission Date: 20100115
  Serious: Yes (Hospitalization)
  Sender: FDA-Public Use
  Company Number: 9039997-2009-00054

PATIENT
  Age: 77 Year
  Sex: Female

DRUGS (5)
  1. LEVULAN [Suspect]
     Indication: ACTINIC KERATOSIS
     Dosage: 20%, ONCE, TOPICAL
     Route: 061
     Dates: start: 20090713
  2. SALEX [Concomitant]
  3. THYROID TAB [Concomitant]
  4. METOPROLOL TARTRATE [Concomitant]
  5. DIAZIDE [Concomitant]

REACTIONS (1)
  - DYSPNOEA [None]
